FAERS Safety Report 5855677-0 (Version None)
Quarter: 2008Q3

REPORT INFORMATION
  Report Type: 
  Country: None (occurrence: None)
  Receive Date: 20080823
  Receipt Date: 20080818
  Transmission Date: 20090109
  Serious: Yes (Hospitalization)
  Sender: FDA-Public Use
  Company Number: US-ELI_LILLY_AND_COMPANY-US200807001625

PATIENT
  Sex: Male
  Weight: 126.98 kg

DRUGS (22)
  1. BYETTA [Suspect]
     Indication: TYPE 2 DIABETES MELLITUS
     Dosage: 5 UG, 2/D
     Route: 058
     Dates: start: 20071201, end: 20080101
  2. BYETTA [Suspect]
     Dosage: 10 UG, 2/D
     Route: 058
     Dates: start: 20080126, end: 20080126
  3. BYETTA [Suspect]
     Dosage: 10 UG, 2/D
     Route: 058
     Dates: start: 20080626
  4. APIDRA [Concomitant]
     Indication: TYPE 2 DIABETES MELLITUS
     Dosage: 18 U, EACH MORNING
     Route: 058
     Dates: start: 20080201, end: 20080625
  5. APIDRA [Concomitant]
     Dosage: 20 U, DAILY (1/D)
     Dates: start: 20080201, end: 20080625
  6. APIDRA [Concomitant]
     Dosage: UNK U, DAILY (1/D)
     Route: 058
     Dates: start: 20080626
  7. LANTUS [Concomitant]
     Indication: TYPE 2 DIABETES MELLITUS
     Dosage: 60 U, EACH EVENING
     Route: 058
     Dates: start: 20080201
  8. METOPROLOL TARTRATE [Concomitant]
     Indication: CARDIAC FAILURE CONGESTIVE
     Dosage: 100 MG, DAILY (1/D)
     Route: 048
     Dates: start: 20000101
  9. CLONIDINE [Concomitant]
     Indication: HYPERTENSION
     Dosage: 0.3 MG, DAILY (1/D)
     Route: 048
     Dates: start: 20030101
  10. SPIRONOLACTONE [Concomitant]
     Indication: HYPERTENSION
     Dosage: 25 MG, 2/D
     Route: 048
     Dates: start: 20040101
  11. SPIRONOLACTONE [Concomitant]
     Dosage: 25 MG, DAILY (1/D)
     Route: 048
     Dates: start: 20080601
  12. WARFARIN SODIUM [Concomitant]
     Indication: HEART RATE IRREGULAR
     Dosage: 2.5 MG, QOD
     Route: 048
     Dates: start: 20070101
  13. WARFARIN SODIUM [Concomitant]
     Dosage: 5 MG, QOD
     Route: 048
     Dates: start: 20070101
  14. FLOMAX [Concomitant]
     Dosage: 0.4 MG, DAILY (1/D)
     Route: 048
     Dates: start: 20080501
  15. CRESTOR [Concomitant]
     Indication: BLOOD CHOLESTEROL
     Dosage: 5 MG, DAILY (1/D)
     Route: 048
     Dates: start: 20080701
  16. FUROSEMIDE [Concomitant]
     Indication: POLYURIA
     Dosage: 20 MG, DAILY (1/D)
     Route: 048
     Dates: start: 20000101
  17. POTASSIUM CHLORIDE [Concomitant]
     Indication: SUPPLEMENTATION THERAPY
     Dosage: 10 MEQ, DAILY (1/D)
     Route: 048
     Dates: start: 20000101
  18. MULTI-VITAMIN [Concomitant]
  19. FISH OIL [Concomitant]
  20. VITAMIN D [Concomitant]
     Dosage: 2000 IU, DAILY (1/D)
     Route: 048
  21. PRAVASTATIN [Concomitant]
     Indication: BLOOD CHOLESTEROL
     Dosage: 40 MG, DAILY (1/D)
     Route: 048
     Dates: start: 20080601, end: 20080601
  22. LIPITOR [Concomitant]
     Indication: BLOOD CHOLESTEROL
     Dosage: 10 MG, DAILY (1/D)
     Route: 048
     Dates: start: 20030101, end: 20080501

REACTIONS (10)
  - BLOOD GLUCOSE INCREASED [None]
  - COLD SWEAT [None]
  - DECREASED APPETITE [None]
  - FEELING HOT [None]
  - HYPERHIDROSIS [None]
  - INFLUENZA LIKE ILLNESS [None]
  - MALAISE [None]
  - PAIN [None]
  - PNEUMONIA [None]
  - WEIGHT DECREASED [None]
